FAERS Safety Report 5991575-X (Version None)
Quarter: 2008Q4

REPORT INFORMATION
  Report Type: 
  Country: None (occurrence: None)
  Receive Date: 20081211
  Receipt Date: 20080501
  Transmission Date: 20090506
  Serious: No
  Sender: FDA-Public Use
  Company Number: US-AMGEN-KDL274429

PATIENT
  Sex: Female

DRUGS (1)
  1. ENBREL [Suspect]
     Indication: PSORIATIC ARTHROPATHY
     Route: 058
     Dates: start: 20080406, end: 20080418

REACTIONS (4)
  - BRONCHITIS BACTERIAL [None]
  - DYSPNOEA [None]
  - PRODUCTIVE COUGH [None]
  - PYREXIA [None]
